FAERS Safety Report 25407581 (Version 1)
Quarter: 2025Q2

REPORT INFORMATION
  Report Type: Spontaneous
  Country: US (occurrence: None)
  Receive Date: 20250605
  Receipt Date: 20250605
  Transmission Date: 20250717
  Serious: No
  Sender: FDA-CTU
  Company Number: None

PATIENT
  Age: 56 Year
  Sex: Female

DRUGS (1)
  1. XDEMVY [Suspect]
     Active Substance: LOTILANER
     Indication: Ocular demodicosis
     Dosage: FREQUENCY : DAILY;?
     Route: 047
     Dates: start: 20250430

REACTIONS (4)
  - Visual impairment [None]
  - Blindness [None]
  - Vision blurred [None]
  - Cognitive disorder [None]

NARRATIVE: CASE EVENT DATE: 20250430
